FAERS Safety Report 4893223-9 (Version None)
Quarter: 2006Q1

REPORT INFORMATION
  Report Type: 
  Country: None (occurrence: None)
  Receive Date: 20060127
  Receipt Date: 20060111
  Transmission Date: 20060701
  Serious: Yes (Hospitalization, Other)
  Sender: FDA-Public Use
  Company Number: JP-NOVOPROD-250106

PATIENT
  Age: 37 Year
  Sex: Female
  Weight: 68 kg

DRUGS (3)
  1. PENFILL R CHU [Suspect]
     Indication: DIABETES MELLITUS INSULIN-DEPENDENT
     Dosage: 12+10-8 IU
     Route: 058
     Dates: start: 20040813
  2. THYRADIN [Concomitant]
     Dosage: 100 UG, QD
     Route: 048
     Dates: start: 20010101
  3. ROHYPNOL [Concomitant]
     Dosage: UNKNOWN
     Route: 048
     Dates: start: 20010101

REACTIONS (3)
  - ASTHENIA [None]
  - CHOREA [None]
  - HYPOGLYCAEMIA [None]
